FAERS Safety Report 8408661-7 (Version None)
Quarter: 2012Q2

REPORT INFORMATION
  Report Type: 
  Country: None (occurrence: None)
  Receive Date: 20120604
  Receipt Date: 20120127
  Transmission Date: 20120825
  Serious: No
  Sender: FDA-Public Use
  Company Number: US-NOVEN-12US004006

PATIENT
  Sex: Male

DRUGS (2)
  1. COUMADIN [Concomitant]
     Indication: CARDIAC DISORDER
     Route: 048
  2. DAYTRANA [Suspect]
     Indication: ATTENTION DEFICIT/HYPERACTIVITY DISORDER
     Dosage: 15 MG, UNKNOWN
     Route: 062

REACTIONS (2)
  - APPLICATION SITE SWELLING [None]
  - APPLICATION SITE ERYTHEMA [None]
